FAERS Safety Report 4740897-9 (Version None)
Quarter: 2005Q3

REPORT INFORMATION
  Report Type: 
  Country: None (occurrence: None)
  Receive Date: 20050808
  Receipt Date: 20050802
  Transmission Date: 20060218
  Serious: Yes (Other)
  Sender: FDA-Public Use
  Company Number: 200511964BCC

PATIENT
  Age: 84 Year
  Sex: Female
  Weight: 54.8852 kg

DRUGS (2)
  1. MAGNESIUM OXIDE [Suspect]
     Indication: CONSTIPATION
     Dosage: SEE IMAGE
     Dates: start: 20050502, end: 20050503
  2. ACCUPRIL [Concomitant]

REACTIONS (3)
  - DIARRHOEA [None]
  - DRUG EFFECT DECREASED [None]
  - HAEMATOCHEZIA [None]
